FAERS Safety Report 9326078 (Version 1)
Quarter: 2013Q2

REPORT INFORMATION
  Report Type: Spontaneous
  Country: US (occurrence: None)
  Receive Date: 20130603
  Receipt Date: 20130603
  Transmission Date: 20140414
  Serious: Yes (Hospitalization)
  Sender: FDA-Public Use
  Company Number: None

PATIENT
  Age: 54 Year
  Sex: Female
  Weight: 104.33 kg

DRUGS (2)
  1. SULFAMETHOXAZOLE [Suspect]
     Indication: EAR INFECTION
     Route: 048
     Dates: start: 20130322, end: 20130327
  2. SULFAMETHOXAZOLE [Suspect]
     Indication: SINUSITIS
     Route: 048
     Dates: start: 20130322, end: 20130327

REACTIONS (7)
  - Pyrexia [None]
  - Erythema [None]
  - Blister [None]
  - Tongue discolouration [None]
  - Tongue ulceration [None]
  - Stomatitis [None]
  - Pain [None]
